FAERS Safety Report 18416210 (Version 1)
Quarter: 2020Q4

REPORT INFORMATION
  Report Type: Spontaneous
  Country: JP (occurrence: JP)
  Receive Date: 20201022
  Receipt Date: 20201022
  Transmission Date: 20210114
  Serious: Yes (Hospitalization, Other)
  Sender: FDA-Public Use
  Company Number: JP-ASTRAZENECA-2020SF20077

PATIENT
  Age: 87 Year
  Sex: Male
  Weight: 56 kg

DRUGS (11)
  1. LOKELMA [Suspect]
     Active Substance: SODIUM ZIRCONIUM CYCLOSILICATE
     Indication: HYPERKALAEMIA
     Route: 048
     Dates: start: 20200617, end: 20200618
  2. DOXAZOSIN MESILATE [Concomitant]
     Active Substance: DOXAZOSIN MESYLATE
     Route: 048
  3. BENIDIPINE HYDROCHLORIDE [Concomitant]
     Active Substance: BENIDIPINE HYDROCHLORIDE
     Route: 048
  4. LOKELMA [Suspect]
     Active Substance: SODIUM ZIRCONIUM CYCLOSILICATE
     Indication: HYPERKALAEMIA
     Route: 048
     Dates: start: 20200619, end: 20200827
  5. NEXIUM [Concomitant]
     Active Substance: ESOMEPRAZOLE MAGNESIUM
     Route: 048
  6. SENNOSIDE [Concomitant]
     Active Substance: SENNOSIDES
     Route: 048
  7. ZYLORIC [Concomitant]
     Active Substance: ALLOPURINOL
     Route: 048
  8. ARTIST [Concomitant]
     Active Substance: CARVEDILOL
     Route: 048
  9. KREMEZIN [Concomitant]
     Active Substance: ACTIVATED CHARCOAL
     Dosage: 500.0MG UNKNOWN
     Route: 048
     Dates: start: 20191104
  10. SIGMART [Concomitant]
     Active Substance: NICORANDIL
  11. KETOPROFEN. [Concomitant]
     Active Substance: KETOPROFEN
     Route: 062

REACTIONS (4)
  - Blood creatinine increased [Not Recovered/Not Resolved]
  - Blood pressure increased [Unknown]
  - Cardiac failure [Unknown]
  - Oedema peripheral [Unknown]

NARRATIVE: CASE EVENT DATE: 20200617
